FAERS Safety Report 6967614-6 (Version None)
Quarter: 2010Q3

REPORT INFORMATION
  Report Type: 
  Country: None (occurrence: None)
  Receive Date: 20100901
  Receipt Date: 20100819
  Transmission Date: 20110219
  Serious: Yes (Hospitalization, Disabling, Other)
  Sender: FDA-Public Use
  Company Number: A-CH2009-32609

PATIENT
  Age: 60 Year
  Sex: Female
  Weight: 65 kg

DRUGS (13)
  1. TRACLEER [Suspect]
     Indication: SKIN ULCER
     Dosage: 125 MG, BID, ORAL
     Route: 048
     Dates: start: 20050601, end: 20091116
  2. TRACLEER [Suspect]
     Indication: SKIN ULCER
     Dosage: 125 MG, BID, ORAL
     Route: 048
     Dates: start: 20091123, end: 20100610
  3. PREDNISOLONE [Concomitant]
  4. ASPIRIN [Concomitant]
  5. LEVOTHYROXINE SODIUM [Concomitant]
  6. RAMIPRIL [Concomitant]
  7. AMLODIPINE [Concomitant]
  8. PENTOXIFYLLINE [Concomitant]
  9. CALCIUM (CALCIUM) [Concomitant]
  10. VIGANTOLETTEN (COLECALCIFEROL) [Concomitant]
  11. PANTOPRAZOLE SODIUM [Concomitant]
  12. METHOTREXAT (METHOTREXATE) [Concomitant]
  13. FOLIC ACID [Concomitant]

REACTIONS (4)
  - CALCINOSIS [None]
  - DISEASE PROGRESSION [None]
  - DRUG INEFFECTIVE [None]
  - SKIN ULCER [None]
